FAERS Safety Report 8274787-4 (Version None)
Quarter: 2012Q2

REPORT INFORMATION
  Report Type: 
  Country: None (occurrence: None)
  Receive Date: 20120411
  Receipt Date: 20120404
  Transmission Date: 20120825
  Serious: Yes (Other)
  Sender: FDA-Public Use
  Company Number: US-ELI_LILLY_AND_COMPANY-US201204002710

PATIENT
  Age: 61 Year
  Sex: Female

DRUGS (3)
  1. PLAVIX [Concomitant]
     Dosage: 75 MG, UNK
     Route: 048
     Dates: start: 20100101, end: 20120301
  2. ASPIRIN [Concomitant]
     Dosage: 325 MG, UNK
     Route: 048
     Dates: start: 20100101
  3. PRASUGREL HYDROCHLORIDE [Suspect]
     Indication: CORONARY ANGIOPLASTY
     Dosage: 10 MG, UNK
     Route: 048
     Dates: start: 20120301

REACTIONS (2)
  - THROMBOSIS IN DEVICE [None]
  - ACUTE MYOCARDIAL INFARCTION [None]
